FAERS Safety Report 9593100 (Version 1)
Quarter: 2013Q4

REPORT INFORMATION
  Report Type: Spontaneous
  Country: BE (occurrence: BE)
  Receive Date: 20131004
  Receipt Date: 20131004
  Transmission Date: 20140711
  Serious: Yes (Death)
  Sender: FDA-Public Use
  Company Number: BE-B.I. PHARMACEUTICALS,INC./RIDGEFIELD-2013-BI-31007BL

PATIENT
  Age: 92 Year
  Sex: Female

DRUGS (6)
  1. PRADAXA [Suspect]
     Indication: ATRIAL FIBRILLATION
     Dosage: 220 MG
     Dates: start: 20121221, end: 20130918
  2. L-THYROXINE [Concomitant]
     Indication: HYPOTHYROIDISM
  3. CALCIUM [Concomitant]
  4. VITAMIN D [Concomitant]
  5. COVERSYL [Concomitant]
     Indication: HYPERTENSION
  6. EMCONCOR [Concomitant]
     Indication: HYPERTENSION

REACTIONS (5)
  - Death [Fatal]
  - Loss of consciousness [Unknown]
  - Fall [Unknown]
  - Subdural haematoma [Unknown]
  - Upper limb fracture [Unknown]
